FAERS Safety Report 21056508 (Version 1)
Quarter: 2022Q3

REPORT INFORMATION
  Report Type: Spontaneous
  Country: US (occurrence: US)
  Receive Date: 20220708
  Receipt Date: 20220708
  Transmission Date: 20221027
  Serious: No
  Sender: FDA-Public Use
  Company Number: US-VIIV HEALTHCARE LIMITED-US2022AMR100405

PATIENT

DRUGS (2)
  1. RILPIVIRINE [Suspect]
     Active Substance: RILPIVIRINE
     Indication: HIV infection
     Dosage: UNK UNK, Z,600 MG/3 MLS, RILPIVIRINE 900 MG/3 ML, EVERY 2 MONTH
     Route: 065
  2. CABOTEGRAVIR [Suspect]
     Active Substance: CABOTEGRAVIR
     Indication: HIV infection
     Dosage: UNK UNK, Z,600 MG/3 MLS, RILPIVIRINE 900 MG/3 ML, EVERY 2 MONTH
     Route: 065

REACTIONS (1)
  - Product use issue [Unknown]
